FAERS Safety Report 13072368 (Version 2)
Quarter: 2017Q1

REPORT INFORMATION
  Report Type: Spontaneous
  Country: US (occurrence: US)
  Receive Date: 20161229
  Receipt Date: 20170112
  Transmission Date: 20170428
  Serious: Yes (Other)
  Sender: FDA-Public Use
  Company Number: US-MYLANLABS-2016M1058837

PATIENT

DRUGS (2)
  1. FLUCONAZOLE. [Suspect]
     Active Substance: FLUCONAZOLE
     Indication: LARYNGITIS FUNGAL
     Route: 048
  2. ITRACONAZOLE. [Suspect]
     Active Substance: ITRACONAZOLE
     Indication: LARYNGITIS FUNGAL

REACTIONS (2)
  - Laryngitis fungal [Recovered/Resolved]
  - Cryptococcosis [Recovered/Resolved]
